FAERS Safety Report 19553672 (Version 1)
Quarter: 2021Q3

REPORT INFORMATION
  Report Type: Spontaneous
  Country: US (occurrence: US)
  Receive Date: 20210714
  Receipt Date: 20210714
  Transmission Date: 20211014
  Serious: Yes (Death, Other)
  Sender: FDA-Public Use
  Company Number: US-STRIDES ARCOLAB LIMITED-2021SP023449

PATIENT
  Age: 42 Year
  Sex: Female

DRUGS (1)
  1. RANITIDINE. [Suspect]
     Active Substance: RANITIDINE
     Indication: DYSPEPSIA
     Dosage: UNK
     Route: 048
     Dates: start: 201104, end: 201911

REACTIONS (4)
  - Haematopoietic neoplasm [Fatal]
  - Bone cancer [Fatal]
  - Colorectal cancer [Fatal]
  - Oesophageal carcinoma [Fatal]

NARRATIVE: CASE EVENT DATE: 20190301
